FAERS Safety Report 7861824-1 (Version None)
Quarter: 2011Q4

REPORT INFORMATION
  Report Type: 
  Country: None (occurrence: None)
  Receive Date: 20111027
  Receipt Date: 20101117
  Transmission Date: 20120403
  Serious: No
  Sender: FDA-Public Use
  Company Number: US-AMGEN-USASP2010005337

PATIENT
  Age: 51 Year
  Sex: Female

DRUGS (7)
  1. ENBREL [Suspect]
     Dosage: 50 MG, UNK
     Route: 058
  2. SIMVASTATIN [Concomitant]
     Dosage: 10 MG, UNK
  3. MOTRIN [Concomitant]
     Dosage: 200 MG, UNK
  4. CALCIUM CARBONATE [Concomitant]
     Dosage: 600 MG, UNK
  5. FISH OIL [Concomitant]
  6. PREMPRO [Concomitant]
  7. ALEVE [Concomitant]
     Dosage: 220 MG, UNK

REACTIONS (2)
  - DYSURIA [None]
  - DIARRHOEA [None]
